FAERS Safety Report 8927725 (Version 2)
Quarter: 2012Q4

REPORT INFORMATION
  Report Type: 
  Country: US (occurrence: US)
  Receive Date: 20121126
  Receipt Date: 20121206
  Transmission Date: 20130627
  Serious: Yes (Hospitalization)
  Sender: FDA-Public Use
  Company Number: US-BAXTER-2012BAX024326

PATIENT
  Age: 60 Year
  Sex: Female

DRUGS (1)
  1. DIANEAL LOW CALCIUM [Suspect]
     Indication: PERITONEAL DIALYSIS
     Route: 033

REACTIONS (4)
  - Arrhythmia [Recovered/Resolved]
  - Dehydration [Recovered/Resolved]
  - Blood potassium decreased [Recovered/Resolved]
  - Blood sodium decreased [Recovered/Resolved]
